FAERS Safety Report 7018394-X (Version None)
Quarter: 2010Q3

REPORT INFORMATION
  Report Type: 
  Country: None (occurrence: None)
  Receive Date: 20100928
  Receipt Date: 20100916
  Transmission Date: 20110219
  Serious: Yes (Other)
  Sender: FDA-Public Use
  Company Number: PHHY2010US60568

PATIENT
  Sex: Female

DRUGS (3)
  1. RECLAST [Suspect]
     Indication: OSTEOPOROSIS
     Dosage: 5 MG, UNK
     Route: 042
     Dates: start: 20091001
  2. RECLAST [Suspect]
     Dosage: 5 MG
     Route: 042
     Dates: start: 20100308
  3. CALCIUM [Concomitant]
     Route: 048

REACTIONS (2)
  - INFLAMMATION [None]
  - TOOTH DISORDER [None]
